FAERS Safety Report 26007937 (Version 1)
Quarter: 2025Q4

REPORT INFORMATION
  Report Type: Spontaneous
  Country: EU (occurrence: EU)
  Receive Date: 20251106
  Receipt Date: 20251106
  Transmission Date: 20260117
  Serious: Yes (Other)
  Sender: BAYER HEALTHCARE PHARMACEUTICALS INC.
  Company Number: EU-BAYER-2025A145283

PATIENT
  Age: 71 Year
  Sex: Male

DRUGS (11)
  1. DAROLUTAMIDE [Suspect]
     Active Substance: DAROLUTAMIDE
     Indication: Prostate cancer metastatic
     Dosage: 600 MG, BID
     Route: 048
     Dates: start: 202306
  2. DAROLUTAMIDE [Suspect]
     Active Substance: DAROLUTAMIDE
     Indication: Metastases to lung
  3. DAROLUTAMIDE [Suspect]
     Active Substance: DAROLUTAMIDE
     Indication: Metastases to bone
  4. DOCETAXEL [Concomitant]
     Active Substance: DOCETAXEL
     Dosage: 75 MG/M2
     Dates: start: 202306
  5. DOCETAXEL [Concomitant]
     Active Substance: DOCETAXEL
     Dosage: 75 MG/M2
  6. DOCETAXEL [Concomitant]
     Active Substance: DOCETAXEL
     Dosage: 75 MG/M2
  7. DOCETAXEL [Concomitant]
     Active Substance: DOCETAXEL
     Dosage: 75 MG/M2
  8. DOCETAXEL [Concomitant]
     Active Substance: DOCETAXEL
     Dosage: 75 MG/M2
  9. DOCETAXEL [Concomitant]
     Active Substance: DOCETAXEL
     Dosage: 75 MG/M2
     Dates: end: 202311
  10. DENOSUMAB [Concomitant]
     Active Substance: DENOSUMAB
     Dosage: 120 MG SUBCUTANEOUSLY (SC) 4 WEEKLY
     Route: 058
     Dates: start: 202310
  11. LEUPROLIDE ACETATE [Concomitant]
     Active Substance: LEUPROLIDE ACETATE
     Dosage: UNK
     Dates: start: 202306

REACTIONS (9)
  - Pulmonary embolism [None]
  - Deep vein thrombosis [None]
  - Pulmonary embolism [None]
  - Rib fracture [None]
  - Portal vein occlusion [None]
  - Metastases to bone [Recovering/Resolving]
  - Benign prostatic hyperplasia [None]
  - Cholelithiasis [None]
  - Renal cyst [None]

NARRATIVE: CASE EVENT DATE: 20231101
